FAERS Safety Report 8482750-3 (Version None)
Quarter: 2012Q3

REPORT INFORMATION
  Report Type: 
  Country: None (occurrence: None)
  Receive Date: 20120702
  Receipt Date: 20120625
  Transmission Date: 20120928
  Serious: Yes (Other)
  Sender: FDA-Public Use
  Company Number: US-PERRIGO-12US003782

PATIENT
  Sex: Female
  Weight: 53.515 kg

DRUGS (3)
  1. NIGHTTIME ORIGINAL 6HOUR 335 [Suspect]
     Indication: NASOPHARYNGITIS
     Dosage: 5 ML, SINGLE
     Route: 048
     Dates: start: 20120428, end: 20120428
  2. NIGHTTIME ORIGINAL 6HOUR 335 [Suspect]
     Indication: PRODUCT USED FOR UNKNOWN INDICATION
     Dosage: 1 TSP UNK
     Route: 048
  3. FLEXERIL [Concomitant]
     Indication: MUSCLE RELAXANT THERAPY
     Dosage: UNK
     Route: 065

REACTIONS (6)
  - FEELING COLD [None]
  - RESPIRATORY ARREST [None]
  - DYSPNOEA [None]
  - THROAT IRRITATION [None]
  - ASPIRATION [None]
  - PARAESTHESIA [None]
